FAERS Safety Report 7326019-9 (Version None)
Quarter: 2011Q1

REPORT INFORMATION
  Report Type: 
  Country: None (occurrence: None)
  Receive Date: 20110302
  Receipt Date: 20110223
  Transmission Date: 20110831
  Serious: Yes (Other)
  Sender: FDA-Public Use
  Company Number: US-SANOFI-AVENTIS-2011SA004408

PATIENT
  Age: 72 Year
  Sex: Female
  Weight: 81.64 kg

DRUGS (9)
  1. ERGOCALCIFEROL [Concomitant]
     Dates: start: 20101004
  2. NOVOLOG [Concomitant]
     Dosage: BEFORE MEALS
  3. BENICAR HCT [Concomitant]
  4. MULTIVITAMIN [Concomitant]
  5. LANTUS [Suspect]
     Indication: TYPE 2 DIABETES MELLITUS
     Dosage: DOSE:40 UNIT(S)
     Route: 058
     Dates: start: 20090201
  6. SOLOSTAR [Suspect]
     Indication: TYPE 2 DIABETES MELLITUS
     Dates: start: 20090201
  7. ATENOLOL [Concomitant]
     Dates: start: 20071201
  8. AMLODIPINE BESILATE [Concomitant]
     Dates: start: 20080201
  9. VITAMIN D [Concomitant]
     Dates: start: 20101004

REACTIONS (5)
  - BLOOD GLUCOSE INCREASED [None]
  - PRODUCT QUALITY ISSUE [None]
  - TOE AMPUTATION [None]
  - DRUG DOSE OMISSION [None]
  - INJECTION SITE SCAR [None]
